FAERS Safety Report 23560791 (Version 2)
Quarter: 2024Q1

REPORT INFORMATION
  Report Type: Spontaneous
  Country: CN (occurrence: CN)
  Receive Date: 20240223
  Receipt Date: 20240307
  Transmission Date: 20240410
  Serious: Yes (Other)
  Sender: FDA-Public Use
  Company Number: CN-009507513-2402CHN006986

PATIENT
  Age: 53 Year
  Sex: Male

DRUGS (4)
  1. KEYTRUDA [Suspect]
     Active Substance: PEMBROLIZUMAB
     Indication: Tongue cancer metastatic
     Dosage: 200MG, Q3W
     Dates: start: 20230208, end: 20230208
  2. KEYTRUDA [Suspect]
     Active Substance: PEMBROLIZUMAB
     Dosage: 200MG, Q3W
     Dates: start: 20230709, end: 20230709
  3. KEYTRUDA [Suspect]
     Active Substance: PEMBROLIZUMAB
     Dosage: 200MG, Q3W
     Dates: start: 20231009, end: 20231009
  4. KEYTRUDA [Suspect]
     Active Substance: PEMBROLIZUMAB
     Dosage: 200MG, Q3W
     Dates: start: 20231103, end: 20231103

REACTIONS (7)
  - Central hypothyroidism [Recovering/Resolving]
  - Blood creatinine increased [Recovering/Resolving]
  - Lipids increased [Recovering/Resolving]
  - Transaminases increased [Recovering/Resolving]
  - Muscular weakness [Recovered/Resolved]
  - Muscular weakness [Unknown]
  - Inappropriate schedule of product administration [Unknown]

NARRATIVE: CASE EVENT DATE: 20230101
